FAERS Safety Report 8166588-2 (Version None)
Quarter: 2012Q1

REPORT INFORMATION
  Report Type: 
  Country: None (occurrence: None)
  Receive Date: 20120227
  Receipt Date: 20120220
  Transmission Date: 20120608
  Serious: Yes (Other)
  Sender: FDA-Public Use
  Company Number: GB-TEVA-324399ISR

PATIENT
  Sex: Male

DRUGS (1)
  1. DOXAZOSIN [Suspect]
     Indication: HYPERTENSION
     Dates: start: 20110601, end: 20110801

REACTIONS (5)
  - PARALYSIS [None]
  - WEIGHT DECREASED [None]
  - MUSCLE SPASMS [None]
  - DYSGEUSIA [None]
  - HAEMOGLOBIN DECREASED [None]
